FAERS Safety Report 7533541-9 (Version None)
Quarter: 2011Q2

REPORT INFORMATION
  Report Type: 
  Country: None (occurrence: None)
  Receive Date: 20110608
  Receipt Date: 20060130
  Transmission Date: 20111010
  Serious: Yes (Hospitalization)
  Sender: FDA-Public Use
  Company Number: PHNU2006PL00774

PATIENT
  Sex: Female
  Weight: 75 kg

DRUGS (4)
  1. ACARD [Concomitant]
  2. TRITACE [Concomitant]
  3. FLUVASTATIN SODIUM [Suspect]
     Indication: HYPERCHOLESTEROLAEMIA
     Dosage: 80 MG, QD
     Route: 048
     Dates: start: 20051025, end: 20060130
  4. ACLOTIN [Concomitant]

REACTIONS (1)
  - HYPERTENSION [None]
